FAERS Safety Report 7190054-4 (Version None)
Quarter: 2010Q4

REPORT INFORMATION
  Report Type: 
  Country: None (occurrence: None)
  Receive Date: 20101223
  Receipt Date: 20101213
  Transmission Date: 20110411
  Serious: Yes (Hospitalization)
  Sender: FDA-Public Use
  Company Number: FR-JNJFOC-20101103879

PATIENT
  Sex: Female

DRUGS (2)
  1. REMICADE [Suspect]
     Indication: CROHN'S DISEASE
     Dosage: 1-3 INFUSIONS
     Route: 042
  2. REMICADE [Suspect]
     Dosage: 4TH INFUSION
     Route: 042

REACTIONS (2)
  - DERMATITIS BULLOUS [None]
  - HYPERSENSITIVITY [None]
